FAERS Safety Report 9341241 (Version 2)
Quarter: 2013Q3

REPORT INFORMATION
  Report Type: Report from Study
  Country: BE (occurrence: BE)
  Receive Date: 20130611
  Receipt Date: 20130710
  Transmission Date: 20140515
  Serious: No
  Sender: FDA-Public Use
  Company Number: BE-ROCHE-1235349

PATIENT
  Age: 73 Year
  Sex: Male

DRUGS (6)
  1. PEG-INTERFERON ALFA 2A [Suspect]
     Indication: HEPATITIS C
     Route: 058
     Dates: start: 20130227, end: 20130528
  2. RIBAVIRIN [Suspect]
     Indication: HEPATITIS C
     Route: 048
     Dates: start: 20130227, end: 20130528
  3. TELAPREVIR [Suspect]
     Indication: HEPATITIS C
     Route: 048
     Dates: start: 20130227, end: 20130410
  4. COVERSYL [Concomitant]
     Route: 048
     Dates: start: 20130218
  5. LIPANTHYL [Concomitant]
     Route: 048
     Dates: start: 20130218
  6. ASAFLOW [Concomitant]
     Route: 048
     Dates: start: 20111114

REACTIONS (3)
  - Eczema [Not Recovered/Not Resolved]
  - Asthenia [Not Recovered/Not Resolved]
  - Oedema peripheral [Not Recovered/Not Resolved]
